FAERS Safety Report 7759444-2 (Version None)
Quarter: 2011Q3

REPORT INFORMATION
  Report Type: 
  Country: None (occurrence: None)
  Receive Date: 20110919
  Receipt Date: 20110912
  Transmission Date: 20111222
  Serious: Yes (Death)
  Sender: FDA-Public Use
  Company Number: GB-ROCHE-800913

PATIENT
  Age: 44 Year
  Sex: Male

DRUGS (3)
  1. MYCOPHENOLATE MOFETIL [Suspect]
     Indication: IMMUNOSUPPRESSION
     Dosage: DRUG WITHDRAWN
     Route: 065
     Dates: start: 20020101, end: 20100301
  2. METHYLPREDNISOLONE [Suspect]
     Indication: IMMUNOSUPPRESSION
     Route: 065
     Dates: start: 20020101
  3. TACROLIMUS [Suspect]
     Indication: IMMUNOSUPPRESSION
     Route: 065
     Dates: start: 20020101

REACTIONS (1)
  - ANGIOSARCOMA [None]
